FAERS Safety Report 8785112 (Version 2)
Quarter: 2012Q4

REPORT INFORMATION
  Report Type: 
  Country: PH (occurrence: PH)
  Receive Date: 20120914
  Receipt Date: 20121001
  Transmission Date: 20130627
  Serious: Yes (Death)
  Sender: FDA-Public Use
  Company Number: PH-B.I. PHARMACEUTICALS,INC./RIDGEFIELD-2012-CS-01326RP

PATIENT
  Age: 87 Year
  Sex: Female

DRUGS (4)
  1. PRADAXA [Suspect]
     Indication: CEREBROVASCULAR ACCIDENT PROPHYLAXIS
     Dosage: 220 mg
     Route: 048
     Dates: start: 201209, end: 201209
  2. PRADAXA [Suspect]
     Indication: ATRIAL FIBRILLATION
  3. ACE INHIBITOR [Concomitant]
     Indication: HYPERTENSION
  4. SIMVASTATIN [Concomitant]
     Indication: DYSLIPIDAEMIA

REACTIONS (4)
  - Haematemesis [Fatal]
  - Melaena [Fatal]
  - Haematochezia [Fatal]
  - Epistaxis [Fatal]
